FAERS Safety Report 8260624-0 (Version None)
Quarter: 2012Q2

REPORT INFORMATION
  Report Type: 
  Country: None (occurrence: None)
  Receive Date: 20120404
  Receipt Date: 20120330
  Transmission Date: 20120825
  Serious: Yes (Other)
  Sender: FDA-Public Use
  Company Number: RS-BAXTER-2012BAX002101

PATIENT
  Age: 54 Year
  Sex: Male

DRUGS (9)
  1. CYCLOPHOSPHAMIDE [Suspect]
     Route: 042
  2. FLUDARABINE PHOSPHATE [Suspect]
     Route: 042
  3. MITOXANTRONE [Suspect]
  4. DEXAMETHASONE [Suspect]
  5. PREDNISOLONE [Suspect]
  6. CYCLOPHOSPHAMIDE [Suspect]
  7. FLUDARABINE PHOSPHATE [Suspect]
  8. ADRIAMYCIN PFS [Suspect]
  9. VINCRISTINE [Suspect]

REACTIONS (2)
  - ACUTE MYELOID LEUKAEMIA [None]
  - MYELODYSPLASTIC SYNDROME [None]
